FAERS Safety Report 6690783-2 (Version None)
Quarter: 2010Q2

REPORT INFORMATION
  Report Type: 
  Country: None (occurrence: None)
  Receive Date: 20100421
  Receipt Date: 20100415
  Transmission Date: 20101027
  Serious: Yes (Hospitalization)
  Sender: FDA-Public Use
  Company Number: DE-AMGEN-KDC406521

PATIENT
  Age: 82 Year
  Sex: Female

DRUGS (2)
  1. NEULASTA [Suspect]
     Indication: CHEMOTHERAPY
     Dates: start: 20100403
  2. UNSPECIFIED ANTINEOPLASTIC AGENT [Concomitant]

REACTIONS (2)
  - NEUTROPENIA [None]
  - SLEEP DISORDER [None]
